FAERS Safety Report 19261030 (Version 1)
Quarter: 2021Q2

REPORT INFORMATION
  Report Type: Report from Study
  Country: US (occurrence: US)
  Receive Date: 20210515
  Receipt Date: 20210515
  Transmission Date: 20210717
  Serious: No
  Sender: FDA-Public Use
  Company Number: NVSC2021US104669

PATIENT
  Sex: Male

DRUGS (1)
  1. COSENTYX [Suspect]
     Active Substance: SECUKINUMAB
     Indication: PSORIASIS
     Dosage: 150 MG, QW (ROUTE: BENEATH THE SKIN, USUALLY VIA INJECTION)
     Route: 058
     Dates: start: 20210505

REACTIONS (2)
  - Back pain [Unknown]
  - Incorrect dose administered [Unknown]
